FAERS Safety Report 23136384 (Version 1)
Quarter: 2023Q4

REPORT INFORMATION
  Report Type: Spontaneous
  Country: FR (occurrence: FR)
  Receive Date: 20231102
  Receipt Date: 20231102
  Transmission Date: 20240109
  Serious: Yes (Other)
  Sender: FDA-Public Use
  Company Number: FR-CELLTRION INC.-2023FR019615

PATIENT

DRUGS (4)
  1. INFLIXIMAB [Suspect]
     Active Substance: INFLIXIMAB
     Indication: Crohn^s disease
     Dosage: 120 MG, EVERY 2 WEEKS
     Route: 058
     Dates: start: 202308
  2. ALBUTEROL SULFATE [Concomitant]
     Active Substance: ALBUTEROL SULFATE
     Indication: Asthma
     Dosage: UNK
  3. INNOVAIR [Concomitant]
     Active Substance: BECLOMETHASONE DIPROPIONATE\FORMOTEROL
     Indication: Asthma
     Dosage: UNK
  4. NEXPLANON [Concomitant]
     Active Substance: ETONOGESTREL
     Indication: Contraceptive implant

REACTIONS (8)
  - Large intestinal haemorrhage [Unknown]
  - Cyst [Unknown]
  - Dysgeusia [Unknown]
  - Feeling hot [Unknown]
  - Drug delivery system malfunction [Unknown]
  - Syringe issue [Unknown]
  - Arthralgia [Unknown]
  - Drug dose omission by device [Unknown]
